FAERS Safety Report 4842368-8 (Version None)
Quarter: 2005Q4

REPORT INFORMATION
  Report Type: 
  Country: None (occurrence: None)
  Receive Date: 20051125
  Receipt Date: 20051115
  Transmission Date: 20060501
  Serious: Yes (Hospitalization)
  Sender: FDA-Public Use
  Company Number: 2005P1000548

PATIENT
  Age: 70 Year
  Sex: Male
  Weight: 78 kg

DRUGS (9)
  1. RETEPLASE (RETEPLASE) [Suspect]
     Indication: ACUTE MYOCARDIAL INFARCTION
     Dosage: IV
     Route: 042
     Dates: start: 20050703, end: 20050703
  2. ABCIXIMAB (ABCIXIMAB) [Suspect]
     Indication: ACUTE MYOCARDIAL INFARCTION
     Dosage: IV
     Route: 042
     Dates: start: 20050703
  3. ASPIRIN [Concomitant]
  4. METOPROLOL [Concomitant]
  5. SIMVASTATIN [Concomitant]
  6. TICLOPIDINE HCL [Concomitant]
  7. TRANDOLAPRIL [Concomitant]
  8. ISOSORBIDE [Concomitant]
  9. POTASSIUM [Concomitant]

REACTIONS (1)
  - CORONARY ARTERY STENOSIS [None]
